FAERS Safety Report 9018230 (Version 1)
Quarter: 2013Q1

REPORT INFORMATION
  Report Type: Spontaneous
  Country: US (occurrence: None)
  Receive Date: 20130111
  Receipt Date: 20130111
  Transmission Date: 20140127
  Serious: Yes (Other)
  Sender: FDA-Public Use
  Company Number: None

PATIENT
  Age: 70 Year
  Sex: Male
  Weight: 86.3 kg

DRUGS (2)
  1. RITUXIMAB [Suspect]
     Dosage: 746.2MG ONCE IV DRIP
     Route: 041
     Dates: start: 20120108, end: 20120108
  2. RITUXIMAB [Suspect]

REACTIONS (2)
  - Infusion related reaction [None]
  - Anaphylactic reaction [None]
